FAERS Safety Report 6635692 (Version 7)
Quarter: 2012Q4

REPORT INFORMATION
  Report Type: 
  Country: US (occurrence: US)
  Receive Date: 20080508
  Receipt Date: 20121022
  Transmission Date: 20130627
  Serious: Yes (Hospitalization)
  Sender: FDA-Public Use
  Company Number: US-JNJFOC-20080500844

PATIENT
  Sex: Female
  Weight: 79.92 kg

DRUGS (41)
  1. LEVAQUIN [Suspect]
     Indication: SEPSIS
     Route: 042
     Dates: start: 20080110, end: 20080112
  2. LEVAQUIN [Suspect]
     Indication: URINARY TRACT INFECTION
     Route: 042
     Dates: start: 20080110, end: 20080112
  3. LEVAQUIN [Suspect]
     Indication: KIDNEY INFECTION
     Route: 042
     Dates: start: 20080110, end: 20080112
  4. LEVAQUIN [Suspect]
     Indication: SEPSIS
     Route: 048
     Dates: start: 20080113, end: 20080124
  5. LEVAQUIN [Suspect]
     Indication: URINARY TRACT INFECTION
     Route: 048
     Dates: start: 20080113, end: 20080124
  6. LEVAQUIN [Suspect]
     Indication: KIDNEY INFECTION
     Route: 048
     Dates: start: 20080113, end: 20080124
  7. VERAPAMIL [Interacting]
     Indication: BLOOD PRESSURE
     Dosage: half tablet
     Route: 048
     Dates: start: 1998
  8. DYAZIDE [Concomitant]
     Indication: HYPERTENSION
     Route: 048
     Dates: start: 1998
  9. DYAZIDE [Concomitant]
     Indication: DIURETIC THERAPY
     Route: 048
     Dates: start: 1998
  10. FEMAKA [Concomitant]
     Indication: BREAST CANCER
     Dates: start: 2005
  11. ASA [Concomitant]
     Indication: ANTICOAGULANT THERAPY
     Dates: start: 1998
  12. CALCIUM [Concomitant]
     Indication: NUTRITIONAL SUPPORT
     Dates: start: 1998
  13. FEMARA [Concomitant]
  14. METFORMIN [Concomitant]
     Route: 048
  15. ASPIRIN [Concomitant]
     Indication: ANTICOAGULANT THERAPY
     Route: 048
     Dates: start: 20080205, end: 20080306
  16. CIPROFLOXACIN [Concomitant]
  17. PRILOSEC [Concomitant]
  18. MECLIZINE [Concomitant]
     Indication: VERTIGO
     Route: 048
  19. COLACE [Concomitant]
     Indication: DIARRHOEA
     Route: 048
     Dates: start: 20080205, end: 20080306
  20. PROTONIX [Concomitant]
     Indication: GASTROINTESTINAL DISORDER THERAPY
     Route: 048
     Dates: start: 20080204, end: 20080305
  21. ZOLPIDEM [Concomitant]
     Indication: INSOMNIA
     Dosage: nightly
     Route: 048
     Dates: start: 20080204, end: 20080305
  22. CALCIUM SUPPLEMENT [Concomitant]
     Route: 048
  23. MULTIVITAMIN [Concomitant]
     Route: 048
  24. LIDOCAINE 1% [Concomitant]
     Dates: start: 20080204
  25. ANCEF [Concomitant]
     Route: 042
     Dates: start: 20080204, end: 20080205
  26. FENTANYL CITRATE [Concomitant]
     Indication: PRODUCT USED FOR UNKNOWN INDICATION
     Route: 042
     Dates: start: 20080204
  27. AMIODARONE [Concomitant]
     Route: 042
  28. ADENOSINE [Concomitant]
     Route: 042
  29. ATROPINE SULPHATE [Concomitant]
     Route: 042
     Dates: start: 20080204
  30. CORTROSYN [Concomitant]
     Route: 042
     Dates: start: 20080205
  31. DOPAMINE [Concomitant]
     Dosage: as needed
     Route: 042
     Dates: start: 20080205, end: 20080306
  32. SOLU-CORTEF [Concomitant]
     Route: 042
     Dates: start: 20080205, end: 20080306
  33. MIDAZOLAM HCL [Concomitant]
     Route: 050
     Dates: start: 20080204, end: 20080204
  34. INSULIN REGULAR HUMA [Concomitant]
     Dosage: 2-9 unit
     Route: 058
     Dates: start: 20080204, end: 20080305
  35. SODIUM BICARBONATE [Concomitant]
     Route: 042
  36. TYLENOL [Concomitant]
     Route: 048
     Dates: start: 20080204, end: 20080305
  37. MAGNESIUM SULPHATE [Concomitant]
     Route: 042
     Dates: start: 20080205, end: 20080306
  38. MORPHINE SULPHATE [Concomitant]
     Route: 042
     Dates: start: 20080204, end: 20080305
  39. METOCLOPRAMIDE [Concomitant]
     Route: 042
     Dates: start: 20080204, end: 20080305
  40. ONDANSETRON [Concomitant]
     Route: 042
     Dates: start: 20080204, end: 20080305
  41. DEXAMETHASONE [Concomitant]
     Route: 042
     Dates: start: 20080204, end: 20080305

REACTIONS (5)
  - Atrioventricular block [Recovered/Resolved]
  - Drug interaction [Recovered/Resolved]
  - Fall [Recovered/Resolved]
  - Adams-Stokes syndrome [Unknown]
  - Tendon disorder [Recovered/Resolved]
